FAERS Safety Report 21381598 (Version 11)
Quarter: 2023Q2

REPORT INFORMATION
  Report Type: Report from Study
  Country: FR (occurrence: FR)
  Receive Date: 20220927
  Receipt Date: 20230612
  Transmission Date: 20230722
  Serious: Yes (Hospitalization, Other)
  Sender: FDA-Public Use
  Company Number: FR-GILEAD-2022-0586805

PATIENT
  Sex: Female
  Weight: 71 kg

DRUGS (13)
  1. SACITUZUMAB GOVITECAN-HZIY [Suspect]
     Active Substance: SACITUZUMAB GOVITECAN-HZIY
     Indication: Triple negative breast cancer
     Dosage: 10 MG/KG, C1D1 AND C1D8
     Route: 042
     Dates: start: 20220616, end: 20220627
  2. SACITUZUMAB GOVITECAN-HZIY [Suspect]
     Active Substance: SACITUZUMAB GOVITECAN-HZIY
     Dosage: 10 MG/KG, C2D1 AND C2D8
     Route: 042
     Dates: start: 20220718, end: 20220725
  3. SACITUZUMAB GOVITECAN-HZIY [Suspect]
     Active Substance: SACITUZUMAB GOVITECAN-HZIY
     Dosage: 10 MG/KG, C3D1 AND C2D8
     Route: 042
     Dates: start: 20220907, end: 20220914
  4. SACITUZUMAB GOVITECAN-HZIY [Suspect]
     Active Substance: SACITUZUMAB GOVITECAN-HZIY
     Dosage: 7.5 MG/KG, C4 D1,D8
     Route: 042
     Dates: start: 20221011, end: 20221018
  5. SACITUZUMAB GOVITECAN-HZIY [Suspect]
     Active Substance: SACITUZUMAB GOVITECAN-HZIY
     Dosage: 7.5 MG/KG, C5 D1,D8
     Route: 042
     Dates: start: 20221102, end: 20221109
  6. SACITUZUMAB GOVITECAN-HZIY [Suspect]
     Active Substance: SACITUZUMAB GOVITECAN-HZIY
     Dosage: 7.5 MG/KG
     Route: 042
     Dates: start: 20221123
  7. SACITUZUMAB GOVITECAN-HZIY [Suspect]
     Active Substance: SACITUZUMAB GOVITECAN-HZIY
     Dosage: 7.5 MG/KG, D8
     Route: 042
     Dates: start: 20221130
  8. SACITUZUMAB GOVITECAN-HZIY [Suspect]
     Active Substance: SACITUZUMAB GOVITECAN-HZIY
     Dosage: 7.5 MG/KG ON C7D1, D8
     Route: 042
     Dates: start: 20221214, end: 20221221
  9. SACITUZUMAB GOVITECAN-HZIY [Suspect]
     Active Substance: SACITUZUMAB GOVITECAN-HZIY
     Dosage: 7.5 MG/KG ON C8D1, D8
     Route: 042
     Dates: start: 20230111, end: 20230118
  10. SACITUZUMAB GOVITECAN-HZIY [Suspect]
     Active Substance: SACITUZUMAB GOVITECAN-HZIY
     Dosage: 7.5 MG/KG, C9D1 AND C9D8
     Route: 042
     Dates: start: 20230201, end: 20230208
  11. SACITUZUMAB GOVITECAN-HZIY [Suspect]
     Active Substance: SACITUZUMAB GOVITECAN-HZIY
     Dosage: 7.5 MG/KG, C11D1
     Route: 042
     Dates: start: 20230316, end: 20230323
  12. SACITUZUMAB GOVITECAN-HZIY [Suspect]
     Active Substance: SACITUZUMAB GOVITECAN-HZIY
     Dosage: 7.5 MG/KG, C12D1 AND C12D8
     Route: 042
     Dates: start: 20230413, end: 20230420
  13. SACITUZUMAB GOVITECAN-HZIY [Suspect]
     Active Substance: SACITUZUMAB GOVITECAN-HZIY
     Dosage: 7.5 MG/KG
     Route: 042
     Dates: start: 20230519, end: 20230526

REACTIONS (13)
  - Acute kidney injury [Unknown]
  - Hypokalaemia [Recovered/Resolved]
  - Pancytopenia [Unknown]
  - Thrombocytopenia [Not Recovered/Not Resolved]
  - Febrile neutropenia [Unknown]
  - Anaemia [Unknown]
  - Anaemia [Recovered/Resolved]
  - Diarrhoea [Unknown]
  - Anaemia [Recovered/Resolved]
  - Inflammation [Recovered/Resolved]
  - Inappropriate schedule of product administration [Unknown]
  - Inappropriate schedule of product administration [Recovered/Resolved]
  - Off label use [Unknown]

NARRATIVE: CASE EVENT DATE: 20220623
